FAERS Safety Report 6545524-6 (Version None)
Quarter: 2010Q1

REPORT INFORMATION
  Report Type: 
  Country: None (occurrence: None)
  Receive Date: 20100121
  Receipt Date: 20100113
  Transmission Date: 20100710
  Serious: Yes (Life-Threatening, Hospitalization, Other)
  Sender: FDA-Public Use
  Company Number: JP-ABBOTT-09P-087-0613988-00

PATIENT
  Sex: Female

DRUGS (5)
  1. HUMIRA [Suspect]
     Indication: RHEUMATOID ARTHRITIS
     Route: 058
     Dates: start: 20090811, end: 20091124
  2. METHOTREXATE [Concomitant]
     Indication: RHEUMATOID ARTHRITIS
     Route: 048
     Dates: end: 20091207
  3. PREDNISOLONE [Concomitant]
     Indication: RHEUMATOID ARTHRITIS
     Route: 048
     Dates: end: 20090917
  4. PREDNISOLONE [Concomitant]
     Route: 048
     Dates: start: 20090917, end: 20091027
  5. PREDNISOLONE [Concomitant]
     Route: 048
     Dates: start: 20091027

REACTIONS (3)
  - ARTHRITIS BACTERIAL [None]
  - RENAL FAILURE ACUTE [None]
  - SEPTIC SHOCK [None]
